FAERS Safety Report 7612910-2 (Version None)
Quarter: 2011Q3

REPORT INFORMATION
  Report Type: 
  Country: None (occurrence: None)
  Receive Date: 20110708
  Receipt Date: 20110623
  Transmission Date: 20111222
  Serious: Yes (Other)
  Sender: FDA-Public Use
  Company Number: TCI2011A03487

PATIENT
  Age: 8 Decade
  Sex: Male

DRUGS (2)
  1. ACTOS [Suspect]
     Indication: TYPE 2 DIABETES MELLITUS
     Dosage: 15 MG (15 MG, 1 D) PER ORAL, 30 MG (30 MG, 1 D) PER ORAL
     Route: 048
     Dates: start: 20070709
  2. ACTOS [Suspect]
     Indication: TYPE 2 DIABETES MELLITUS
     Dosage: 15 MG (15 MG, 1 D) PER ORAL, 30 MG (30 MG, 1 D) PER ORAL
     Route: 048
     Dates: end: 20090207

REACTIONS (2)
  - ABDOMINAL PAIN [None]
  - BLADDER CANCER [None]
